FAERS Safety Report 8940538 (Version 1)
Quarter: 2012Q4

REPORT INFORMATION
  Report Type: 
  Country: US (occurrence: US)
  Receive Date: 20121203
  Receipt Date: 20121203
  Transmission Date: 20130627
  Serious: No
  Sender: FDA-Public Use
  Company Number: US-ASTRAZENECA-2012SE85884

PATIENT
  Age: 84 Year
  Sex: Female
  Weight: 63.5 kg

DRUGS (8)
  1. BRILINTA [Suspect]
     Route: 048
     Dates: start: 20120926, end: 20121108
  2. RANEXA [Concomitant]
     Indication: CHEST PAIN
  3. RANEXA [Concomitant]
     Indication: ANGINA PECTORIS
  4. BABY ASPIRIN [Concomitant]
     Indication: CARDIAC DISORDER
  5. METOPROLOL TARTRATE [Concomitant]
  6. ISOSORBIDE MONONITRATE [Concomitant]
  7. PLAVIX [Concomitant]
     Indication: STENT PLACEMENT
  8. ATORVASTATIN [Concomitant]
     Indication: BLOOD CHOLESTEROL INCREASED

REACTIONS (6)
  - Chest pain [Unknown]
  - Angina pectoris [Unknown]
  - Pain [Unknown]
  - Contusion [Recovering/Resolving]
  - Epistaxis [Unknown]
  - Dyspnoea [Unknown]
